FAERS Safety Report 9597076 (Version 1)
Quarter: 2013Q4

REPORT INFORMATION
  Report Type: Spontaneous
  Country: NO (occurrence: NO)
  Receive Date: 20131004
  Receipt Date: 20131004
  Transmission Date: 20140711
  Serious: Yes (Other)
  Sender: FDA-Public Use
  Company Number: NO-ACTAVIS-2013-17509

PATIENT
  Sex: Female

DRUGS (1)
  1. TOPIRAMATE (UNKNOWN) [Suspect]
     Indication: EPILEPSY
     Dosage: 100 MG/DAY; DOSAGE FORM: UNSPECIFIED
     Route: 048

REACTIONS (3)
  - Grand mal convulsion [Unknown]
  - Convulsion [Unknown]
  - Exposure during pregnancy [Recovered/Resolved]
